FAERS Safety Report 10724817 (Version 2)
Quarter: 2015Q1

REPORT INFORMATION
  Report Type: Spontaneous
  Country: DE (occurrence: DE)
  Receive Date: 20150120
  Receipt Date: 20150303
  Transmission Date: 20150721
  Serious: Yes (Other)
  Sender: FDA-Public Use
  Company Number: DE-ASTELLAS-2014US019316

PATIENT
  Sex: Female
  Weight: 52 kg

DRUGS (3)
  1. VESIKUR [Suspect]
     Active Substance: SOLIFENACIN SUCCINATE
     Indication: HYPERTONIC BLADDER
     Route: 048
     Dates: start: 2013
  2. IBUPROFEN. [Concomitant]
     Active Substance: IBUPROFEN
     Indication: SCOLIOSIS
     Dosage: 1-2 TABLETS PER DAY ONCE EVERY 2-3 WEEKS
     Route: 048
     Dates: start: 2000
  3. IBUPROFEN. [Concomitant]
     Active Substance: IBUPROFEN
     Indication: FACET JOINT SYNDROME

REACTIONS (6)
  - Pruritus [Unknown]
  - Nasal dryness [Recovered/Resolved]
  - Adverse event [Unknown]
  - Constipation [Recovered/Resolved]
  - Fatigue [Unknown]
  - Dry mouth [Unknown]
